FAERS Safety Report 6039155-4 (Version None)
Quarter: 2009Q1

REPORT INFORMATION
  Report Type: 
  Country: None (occurrence: None)
  Receive Date: 20090115
  Receipt Date: 20090106
  Transmission Date: 20090719
  Serious: Yes (Other)
  Sender: FDA-Public Use
  Company Number: US-PFIZER INC-2009151746

PATIENT
  Age: 34 Year
  Sex: Male

DRUGS (2)
  1. METRONIDAZOLE BENZOATE AND METRONIDAZOLE AND METRONIDAZOLE HYDROCHLORI [Suspect]
     Indication: MENINGITIS
     Dosage: 500 MG, 4X/DAY
     Dates: start: 19990101
  2. METRONIDAZOLE AND METRONIDAZOLE BENZOATE AND METRONIDAZOLE HYDROCHLORI [Suspect]
     Indication: BACTERAEMIA

REACTIONS (2)
  - NERVOUS SYSTEM DISORDER [None]
  - NEUROPATHY PERIPHERAL [None]
